FAERS Safety Report 4886827-0 (Version None)
Quarter: 2006Q1

REPORT INFORMATION
  Report Type: 
  Country: None (occurrence: None)
  Receive Date: 20060119
  Receipt Date: 20060119
  Transmission Date: 20060701
  Serious: Yes (Other)
  Sender: FDA-Public Use
  Company Number: None

PATIENT
  Sex: Female
  Weight: 52.1637 kg

DRUGS (1)
  1. BONIVA [Suspect]
     Indication: OSTEOPOROSIS
     Dosage: 1   PER MONTH   PO   (ONE PILL, ONE DOSE, 1 MO.)
     Route: 048

REACTIONS (4)
  - ARTHRALGIA [None]
  - BONE PAIN [None]
  - JOINT RANGE OF MOTION DECREASED [None]
  - MYALGIA [None]
